FAERS Safety Report 10342475 (Version 1)
Quarter: 2014Q3

REPORT INFORMATION
  Report Type: Spontaneous
  Country: US (occurrence: None)
  Receive Date: 20140723
  Receipt Date: 20140723
  Transmission Date: 20150326
  Serious: Yes (Hospitalization, Other)
  Sender: FDA-Public Use
  Company Number: UNT-2014-001628

PATIENT
  Age: 71 Year
  Sex: Male
  Weight: 75.8 kg

DRUGS (3)
  1. REMODULIN [Suspect]
     Active Substance: TREPROSTINIL
     Indication: COR PULMONALE CHRONIC
     Route: 041
     Dates: start: 20120616
  2. SILDENAFIL (SILDENAFIL) [Concomitant]
     Active Substance: SILDENAFIL
  3. LETAIRIS [Concomitant]
     Active Substance: AMBRISENTAN

REACTIONS (5)
  - Dyspnoea [None]
  - Renal failure acute [None]
  - Urinary tract infection [None]
  - Blood pressure abnormal [None]
  - Oxygen saturation decreased [None]

NARRATIVE: CASE EVENT DATE: 20140403
